FAERS Safety Report 4592618-0 (Version None)
Quarter: 2005Q1

REPORT INFORMATION
  Report Type: 
  Country: None (occurrence: None)
  Receive Date: 20050222
  Receipt Date: 20050208
  Transmission Date: 20050727
  Serious: Yes (Other)
  Sender: FDA-Public Use
  Company Number: 2005027986

PATIENT
  Sex: Male

DRUGS (3)
  1. MINIPRESS [Suspect]
     Indication: HYPERTENSION
     Dosage: 2 MG (1 MG, 1 IN 2 D),
  2. ALDACTAZIDE [Suspect]
     Indication: HYPERTENSION
  3. NEBIVOLOL (NEBIVOLOL) [Suspect]
     Indication: HYPERTENSION

REACTIONS (5)
  - ATRIAL FIBRILLATION [None]
  - BRADYCARDIA [None]
  - DRUG INEFFECTIVE [None]
  - DRUG INTOLERANCE [None]
  - SELF-MEDICATION [None]
